FAERS Safety Report 5671259-8 (Version None)
Quarter: 2008Q1

REPORT INFORMATION
  Report Type: 
  Country: None (occurrence: None)
  Receive Date: 20080318
  Receipt Date: 20080310
  Transmission Date: 20080703
  Serious: Yes (Other)
  Sender: FDA-Public Use
  Company Number: CA-PFIZER INC-2007095930

PATIENT
  Sex: Male

DRUGS (7)
  1. XALATAN [Suspect]
     Route: 047
  2. COMBIGAN [Concomitant]
     Route: 047
  3. TRUSOPT [Concomitant]
     Route: 047
  4. PANTOPRAZOLE SODIUM [Concomitant]
  5. BRIMONIDINE TARTRATE [Concomitant]
     Route: 047
     Dates: start: 20060915, end: 20070917
  6. TIMOLOL MALEATE [Concomitant]
     Route: 047
     Dates: start: 20031008, end: 20070917
  7. HYDROCHLOROTHIAZIDE [Concomitant]
     Indication: FLUID RETENTION
     Dates: start: 20050630, end: 20070619

REACTIONS (1)
  - CHROMATOPSIA [None]
